FAERS Safety Report 7829306-0 (Version None)
Quarter: 2011Q4

REPORT INFORMATION
  Report Type: 
  Country: None (occurrence: None)
  Receive Date: 20111020
  Receipt Date: 20111012
  Transmission Date: 20120403
  Serious: Yes (Hospitalization, Other)
  Sender: FDA-Public Use
  Company Number: FR-BAXTER-2011BH032271

PATIENT
  Age: 9 Year
  Sex: Female
  Weight: 31 kg

DRUGS (3)
  1. GAMMAGARD LIQUID [Suspect]
     Indication: SELECTIVE IGA IMMUNODEFICIENCY
     Route: 042
     Dates: start: 20110920, end: 20110920
  2. GAMMAGARD LIQUID [Suspect]
     Route: 065
     Dates: start: 20110301
  3. GAMMAGARD LIQUID [Suspect]
     Route: 065
     Dates: start: 20091201

REACTIONS (3)
  - ERYTHEMA [None]
  - ASTHMA [None]
  - EYELID OEDEMA [None]
